FAERS Safety Report 16243089 (Version 1)
Quarter: 2019Q2

REPORT INFORMATION
  Report Type: Spontaneous
  Country: BR (occurrence: BR)
  Receive Date: 20190426
  Receipt Date: 20190426
  Transmission Date: 20190711
  Serious: Yes (Other)
  Sender: FDA-Public Use
  Company Number: BR-ABBVIE-19P-020-2760198-00

PATIENT
  Age: 50 Year
  Sex: Female
  Weight: 62 kg

DRUGS (5)
  1. BETASERC 24MG [Suspect]
     Active Substance: BETAHISTINE
     Indication: DIZZINESS
     Route: 048
  2. BETASERC 24MG [Suspect]
     Active Substance: BETAHISTINE
     Indication: EAR INFECTION
     Route: 048
  3. BETASERC 24MG [Suspect]
     Active Substance: BETAHISTINE
     Indication: LABYRINTHITIS
  4. SYNTHROID [Suspect]
     Active Substance: LEVOTHYROXINE SODIUM
     Indication: HORMONE REPLACEMENT THERAPY
     Dosage: DAILY DOSE: 100MCG; FASTING, EVERY MORNING
     Route: 048
  5. SYNTHROID [Suspect]
     Active Substance: LEVOTHYROXINE SODIUM
     Indication: AUTOIMMUNE THYROIDITIS
     Dosage: DAILY DOSE: 100MCG; FASTING, EVERY MORNING
     Route: 048

REACTIONS (8)
  - Swelling [Recovering/Resolving]
  - Speech disorder [Unknown]
  - Pruritus [Unknown]
  - Swelling face [Recovering/Resolving]
  - Urticaria chronic [Recovering/Resolving]
  - Dyspnoea [Recovering/Resolving]
  - Swollen tongue [Recovering/Resolving]
  - Product use in unapproved indication [Unknown]

NARRATIVE: CASE EVENT DATE: 20190328
